FAERS Safety Report 5910549-8 (Version None)
Quarter: 2008Q4

REPORT INFORMATION
  Report Type: 
  Country: None (occurrence: None)
  Receive Date: 20081007
  Receipt Date: 20080307
  Transmission Date: 20090506
  Serious: No
  Sender: FDA-Public Use
  Company Number: US-ASTRAZENECA-2008UW04735

PATIENT
  Age: 26314 Day
  Sex: Female
  Weight: 81.6 kg

DRUGS (6)
  1. ARIMIDEX [Suspect]
     Indication: BREAST CANCER FEMALE
     Route: 048
     Dates: start: 20080306
  2. ALBUTEROL [Concomitant]
  3. TENORMIN [Concomitant]
  4. SYMBICORT [Concomitant]
  5. HYDROCODONE BITARTRATE [Concomitant]
  6. ATIVAN [Concomitant]

REACTIONS (2)
  - ABDOMINAL PAIN UPPER [None]
  - NAUSEA [None]
